FAERS Safety Report 13134155 (Version 1)
Quarter: 2017Q1

REPORT INFORMATION
  Report Type: Spontaneous
  Country: RO (occurrence: RO)
  Receive Date: 20170120
  Receipt Date: 20170120
  Transmission Date: 20170428
  Serious: Yes (Other)
  Sender: FDA-Public Use
  Company Number: PHHY2017RO005577

PATIENT
  Age: 59 Year
  Sex: Female

DRUGS (2)
  1. INTERFERON [Concomitant]
     Active Substance: INTERFERON
     Indication: METASTASES TO LIVER
     Dosage: 3 MILLION UNITS THREE TIMES A WEEK FOR 6 MONTHS
     Route: 065
  2. OCTREOTIDE. [Suspect]
     Active Substance: OCTREOTIDE
     Indication: PANCREATIC NEUROENDOCRINE TUMOUR
     Dosage: 30 MG, AT 4 WEEKS
     Route: 065

REACTIONS (1)
  - Type 2 diabetes mellitus [Unknown]
